FAERS Safety Report 10558481 (Version 1)
Quarter: 2014Q4

REPORT INFORMATION
  Report Type: Spontaneous
  Country: US (occurrence: US)
  Receive Date: 20141031
  Receipt Date: 20141031
  Transmission Date: 20150529
  Serious: Yes (Other)
  Sender: FDA-Public Use
  Company Number: PHHY2014US141451

PATIENT
  Age: 30 Year
  Sex: Female

DRUGS (1)
  1. WARFARIN [Suspect]
     Active Substance: WARFARIN
     Indication: PORTAL VEIN THROMBOSIS
     Route: 065

REACTIONS (4)
  - Urticaria [Recovered/Resolved]
  - International normalised ratio increased [Unknown]
  - Angioedema [Unknown]
  - Pruritus [Recovered/Resolved]
